FAERS Safety Report 19730551 (Version 2)
Quarter: 2022Q2

REPORT INFORMATION
  Report Type: Other
  Country: GB (occurrence: GB)
  Receive Date: 20210821
  Receipt Date: 20220416
  Transmission Date: 20220721
  Serious: Yes (Life-Threatening)
  Sender: FDA-Public Use
  Company Number: GB-MACLEODS PHARMA UK LTD-MAC2021032361

PATIENT

DRUGS (3)
  1. TENOFOVIR [Suspect]
     Active Substance: TENOFOVIR
     Indication: Hepatitis B
     Dosage: 1 DOSAGE FORM, QD
     Route: 048
     Dates: start: 2015
  2. TENOFOVIR [Suspect]
     Active Substance: TENOFOVIR
     Dosage: 1 DOSAGE FORM, TABLET
     Route: 048
     Dates: start: 2016
  3. Boots Paracetamol [Concomitant]
     Indication: Ill-defined disorder
     Dosage: UNK
     Route: 065

REACTIONS (10)
  - Bone pain [Not Recovered/Not Resolved]
  - Thirst [Not Recovered/Not Resolved]
  - Myalgia [Not Recovered/Not Resolved]
  - Polyuria [Not Recovered/Not Resolved]
  - Urine output increased [Not Recovered/Not Resolved]
  - Fatigue [Not Recovered/Not Resolved]
  - Asthenia [Not Recovered/Not Resolved]
  - Muscular weakness [Not Recovered/Not Resolved]
  - Headache [Not Recovered/Not Resolved]
  - Medication error [Unknown]

NARRATIVE: CASE EVENT DATE: 20200101
